FAERS Safety Report 6413603-X (Version None)
Quarter: 2009Q4

REPORT INFORMATION
  Report Type: 
  Country: None (occurrence: None)
  Receive Date: 20091026
  Receipt Date: 20091014
  Transmission Date: 20100525
  Serious: Yes (Other)
  Sender: FDA-Public Use
  Company Number: FR-ABBOTT-09P-056-0602822-00

PATIENT
  Sex: Male

DRUGS (3)
  1. NORVIR [Suspect]
     Indication: HIV INFECTION
     Route: 048
     Dates: start: 20010101
  2. COMBIVIR [Suspect]
     Indication: HIV INFECTION
     Route: 048
     Dates: start: 20010101
  3. INVIRASE [Suspect]
     Indication: HIV INFECTION
     Route: 048
     Dates: start: 20010101

REACTIONS (5)
  - HYPERALDOSTERONISM [None]
  - HYPOKALAEMIA [None]
  - HYPOPHOSPHATAEMIA [None]
  - PROTEINURIA [None]
  - RENAL TUBULAR DISORDER [None]
